FAERS Safety Report 9500408 (Version 1)
Quarter: 2013Q3

REPORT INFORMATION
  Report Type: Spontaneous
  Country: US (occurrence: None)
  Receive Date: 20130904
  Receipt Date: 20130904
  Transmission Date: 20140515
  Serious: Yes (Other)
  Sender: FDA-Public Use
  Company Number: None

PATIENT
  Age: 1 Month
  Sex: Male
  Weight: 58.97 kg

DRUGS (1)
  1. ADDERALL XR [Suspect]
     Indication: ATTENTION DEFICIT/HYPERACTIVITY DISORDER
     Route: 048
     Dates: start: 20130701, end: 20130813

REACTIONS (7)
  - Blood pressure increased [None]
  - Acne [None]
  - Palpitations [None]
  - Presyncope [None]
  - Product substitution issue [None]
  - Drug ineffective [None]
  - Product quality issue [None]
